FAERS Safety Report 6028119-2 (Version None)
Quarter: 2009Q1

REPORT INFORMATION
  Report Type: 
  Country: None (occurrence: None)
  Receive Date: 20090105
  Receipt Date: 20090105
  Transmission Date: 20090719
  Serious: Yes (Other)
  Sender: FDA-Public Use
  Company Number: None

PATIENT
  Sex: Male

DRUGS (4)
  1. THORAZINE [Suspect]
     Indication: PSYCHOTIC DISORDER
     Dosage: 50MGS
     Dates: start: 20080701
  2. STELAZINE [Suspect]
     Indication: PSYCHOTIC DISORDER
     Dosage: 50MGS
     Dates: start: 20080701
  3. STEROIDS [Suspect]
     Indication: PSYCHOTIC DISORDER
     Dosage: 50MGS
     Dates: start: 20080701
  4. VALPROIC ACID [Suspect]
     Indication: ANTISOCIAL BEHAVIOUR
     Dosage: 1,000MGS
     Dates: start: 20080801, end: 20081101

REACTIONS (2)
  - ALCOHOL POISONING [None]
  - TREATMENT NONCOMPLIANCE [None]
